FAERS Safety Report 26164208 (Version 2)
Quarter: 2025Q4

REPORT INFORMATION
  Report Type: Report from Study
  Country: US (occurrence: US)
  Receive Date: 20251216
  Receipt Date: 20251226
  Transmission Date: 20260118
  Serious: Yes (Hospitalization)
  Sender: ALEXION PHARMACEUTICALS
  Company Number: US-AstraZeneca-CH-01011567A

PATIENT
  Sex: Female
  Weight: 72.562 kg

DRUGS (1)
  1. OSIMERTINIB [Suspect]
     Active Substance: OSIMERTINIB
     Indication: Lung neoplasm malignant
     Dosage: 80 MILLIGRAM, QD
     Route: 061

REACTIONS (13)
  - Dry skin [Unknown]
  - Nausea [Unknown]
  - Dyspnoea [Unknown]
  - Pleural effusion [Unknown]
  - Thrombosis [Unknown]
  - Infection [Unknown]
  - Malaise [Unknown]
  - Asthenia [Unknown]
  - Diarrhoea [Unknown]
  - Dizziness [Unknown]
  - Feeling cold [Unknown]
  - Blood potassium decreased [Unknown]
  - Haemoglobin decreased [Unknown]
